FAERS Safety Report 5561313-3 (Version None)
Quarter: 2007Q4

REPORT INFORMATION
  Report Type: 
  Country: None (occurrence: None)
  Receive Date: 20071215
  Receipt Date: 20071023
  Transmission Date: 20080405
  Serious: No
  Sender: FDA-Public Use
  Company Number: US-AMGEN-KDL249359

PATIENT
  Sex: Female
  Weight: 64 kg

DRUGS (13)
  1. ENBREL [Suspect]
     Indication: RHEUMATOID ARTHRITIS
     Dates: start: 20070806
  2. LORTAB [Concomitant]
  3. NEURONTIN [Concomitant]
  4. FLUOXETINE [Concomitant]
  5. ALPRAZOLAM [Concomitant]
  6. PREDNISONE [Concomitant]
  7. PRILOSEC [Concomitant]
  8. CALCIUM WITH VITAMIN D [Concomitant]
  9. CENTRUM [Concomitant]
  10. METHOTREXATE [Concomitant]
  11. FOLIC ACID [Concomitant]
  12. ZANAFLEX [Concomitant]
  13. ACTONEL [Concomitant]

REACTIONS (4)
  - BODY TEMPERATURE INCREASED [None]
  - DYSPNOEA [None]
  - PHARYNGEAL OEDEMA [None]
  - PHARYNGOLARYNGEAL PAIN [None]
